FAERS Safety Report 8264212-1 (Version None)
Quarter: 2012Q2

REPORT INFORMATION
  Report Type: 
  Country: None (occurrence: None)
  Receive Date: 20120403
  Receipt Date: 20120319
  Transmission Date: 20120825
  Serious: Yes (Other)
  Sender: FDA-Public Use
  Company Number: 3011632-2012-00001

PATIENT
  Sex: Male

DRUGS (1)
  1. PH7 NEUTRAL ANTICAVITY FLUORIDE RINSE MINT FLAVOR [Suspect]
     Indication: DENTAL FLUORIDE THERAPY
     Dosage: ORAL RINSE
     Route: 048
     Dates: start: 20120319

REACTIONS (1)
  - HYPERSENSITIVITY [None]
